FAERS Safety Report 6284922-5 (Version None)
Quarter: 2009Q3

REPORT INFORMATION
  Report Type: 
  Country: None (occurrence: None)
  Receive Date: 20090723
  Receipt Date: 20090713
  Transmission Date: 20100115
  Serious: Yes (Hospitalization)
  Sender: FDA-Public Use
  Company Number: OMPQ-NO-0907S-0654

PATIENT
  Age: 73 Year
  Sex: Male

DRUGS (2)
  1. OMNIPAQUE 300 [Suspect]
     Indication: ATRIAL FIBRILLATION
     Dosage: 70 ML, SINGLE DOSE, I.V.
     Route: 042
     Dates: start: 20090501, end: 20090501
  2. ACETYLSALICYLIC ACID     (ZENASPIRIN) [Concomitant]

REACTIONS (4)
  - BIOPSY BONE MARROW ABNORMAL [None]
  - EPISTAXIS [None]
  - GENERAL PHYSICAL HEALTH DETERIORATION [None]
  - IDIOPATHIC THROMBOCYTOPENIC PURPURA [None]
